FAERS Safety Report 6140811-8 (Version None)
Quarter: 2009Q2

REPORT INFORMATION
  Report Type: 
  Country: None (occurrence: None)
  Receive Date: 20090401
  Receipt Date: 20090401
  Transmission Date: 20091009
  Serious: Yes (Hospitalization)
  Sender: FDA-Public Use
  Company Number: None

PATIENT
  Sex: Female
  Weight: 77.45 kg

DRUGS (1)
  1. TAXOL [Suspect]
     Dosage: 80 MG
     Dates: end: 20090325

REACTIONS (3)
  - INFUSION RELATED REACTION [None]
  - PULMONARY EMBOLISM [None]
  - TREATMENT FAILURE [None]
